FAERS Safety Report 7433959-9 (Version None)
Quarter: 2011Q2

REPORT INFORMATION
  Report Type: 
  Country: None (occurrence: None)
  Receive Date: 20110418
  Receipt Date: 20110407
  Transmission Date: 20111010
  Serious: Yes (Disabling)
  Sender: FDA-Public Use
  Company Number: OSCN-NO-0901S-0033

PATIENT
  Age: 69 Year
  Sex: Male

DRUGS (12)
  1. DIALYSIS VITAMINS (VITAMINS /90003601/) [Concomitant]
  2. GADOLINIUM (UNSPECIFIED) (GADOLINIUM) [Concomitant]
  3. OMNISCAN [Suspect]
     Indication: NEPHRECTOMY
     Dosage: 15 ML, SINGLE DOSE, INTRAVENOUS ; 15 ML, SINGLE DOSE, INTRAVENOUS
     Route: 042
     Dates: start: 20000905, end: 20000905
  4. OMNISCAN [Suspect]
     Indication: PYREXIA
     Dosage: 15 ML, SINGLE DOSE, INTRAVENOUS ; 15 ML, SINGLE DOSE, INTRAVENOUS
     Route: 042
     Dates: start: 20000905, end: 20000905
  5. OMNISCAN [Suspect]
     Indication: NEPHRECTOMY
     Dosage: 15 ML, SINGLE DOSE, INTRAVENOUS ; 15 ML, SINGLE DOSE, INTRAVENOUS
     Route: 042
     Dates: start: 20021203, end: 20021203
  6. OMNISCAN [Suspect]
     Indication: PYREXIA
     Dosage: 15 ML, SINGLE DOSE, INTRAVENOUS ; 15 ML, SINGLE DOSE, INTRAVENOUS
     Route: 042
     Dates: start: 20021203, end: 20021203
  7. EPOETIN BETA (NEORECORMON) (EPOETIN BETA) [Concomitant]
  8. MIRTAZAPINE [Concomitant]
  9. HALOPERIDOL [Concomitant]
  10. QUININE SULFATE [Concomitant]
  11. METOCLOPRAMIDE [Concomitant]
  12. LACTULOSE [Concomitant]

REACTIONS (13)
  - CARDIOMEGALY [None]
  - AORTIC ARTERIOSCLEROSIS [None]
  - HIATUS HERNIA [None]
  - DYSPEPSIA [None]
  - HAEMODIALYSIS [None]
  - DYSPNOEA [None]
  - SCLERODERMA [None]
  - NEPHROGENIC SYSTEMIC FIBROSIS [None]
  - DYSSTASIA [None]
  - SPIROMETRY ABNORMAL [None]
  - BLOOD CREATININE INCREASED [None]
  - GASTROOESOPHAGEAL REFLUX DISEASE [None]
  - FATIGUE [None]
